FAERS Safety Report 16667979 (Version 2)
Quarter: 2019Q4

REPORT INFORMATION
  Report Type: Spontaneous
  Country: US (occurrence: US)
  Receive Date: 20190805
  Receipt Date: 20191204
  Transmission Date: 20200122
  Serious: No
  Sender: FDA-Public Use
  Company Number: US-ELI_LILLY_AND_COMPANY-US201907010151

PATIENT
  Age: 59 Year
  Sex: Female

DRUGS (2)
  1. IMITREX DF [Concomitant]
     Active Substance: SUMATRIPTAN SUCCINATE
     Indication: MIGRAINE
  2. EMGALITY [Suspect]
     Active Substance: GALCANEZUMAB-GNLM
     Indication: MIGRAINE
     Dosage: 240 MG, UNKNOWN
     Route: 058

REACTIONS (8)
  - Product dose omission [Unknown]
  - Anxiety [Unknown]
  - Pain in extremity [Unknown]
  - Accidental exposure to product [Unknown]
  - Incorrect route of product administration [Unknown]
  - Speech disorder [Unknown]
  - Blepharitis [Unknown]
  - Nervousness [Unknown]
